FAERS Safety Report 7295320-X (Version None)
Quarter: 2011Q1

REPORT INFORMATION
  Report Type: 
  Country: None (occurrence: None)
  Receive Date: 20110216
  Receipt Date: 20110207
  Transmission Date: 20110831
  Serious: Yes (Hospitalization)
  Sender: FDA-Public Use
  Company Number: FR-ASTRAZENECA-2011SE07628

PATIENT
  Age: 14930 Day
  Sex: Male

DRUGS (2)
  1. LEXOMIL [Suspect]
     Dosage: 3 BOXES ONCE
     Route: 048
     Dates: start: 20110114, end: 20110114
  2. ZOMIG [Suspect]
     Dosage: 26 TABLETS ONCE
     Route: 048
     Dates: start: 20110114, end: 20110114

REACTIONS (2)
  - POISONING DELIBERATE [None]
  - SOMNOLENCE [None]
